FAERS Safety Report 5856719-9 (Version None)
Quarter: 2008Q3

REPORT INFORMATION
  Report Type: 
  Country: None (occurrence: None)
  Receive Date: 20080825
  Receipt Date: 20080813
  Transmission Date: 20090109
  Serious: Yes (Other)
  Sender: FDA-Public Use
  Company Number: DE-PFIZER INC-2008068396

PATIENT
  Sex: Female

DRUGS (4)
  1. LYRICA [Suspect]
     Indication: PAIN
     Route: 048
     Dates: start: 20080401, end: 20080522
  2. CLINDAMYCIN PHOSPHATE [Suspect]
     Indication: INTERVERTEBRAL DISCITIS
     Route: 042
     Dates: start: 20080517, end: 20080525
  3. METHOTREXATE [Suspect]
     Indication: POLYARTHRITIS
     Route: 048
  4. FOSFOMYCIN [Suspect]
     Route: 042
     Dates: start: 20080517, end: 20080521

REACTIONS (1)
  - AGRANULOCYTOSIS [None]
